FAERS Safety Report 25253793 (Version 1)
Quarter: 2025Q2

REPORT INFORMATION
  Report Type: Spontaneous
  Country: JP (occurrence: JP)
  Receive Date: 20250430
  Receipt Date: 20250430
  Transmission Date: 20250717
  Serious: Yes (Hospitalization)
  Sender: EXELIXIS
  Company Number: JP-TAKEDA-2025TJP004206

PATIENT
  Age: 6 Decade
  Sex: Male

DRUGS (2)
  1. CABOMETYX [Suspect]
     Active Substance: CABOZANTINIB S-MALATE
     Indication: Renal cell carcinoma
     Dosage: UNK, QD
     Route: 048
  2. CABOMETYX [Suspect]
     Active Substance: CABOZANTINIB S-MALATE
     Route: 048

REACTIONS (2)
  - Pyrexia [Recovered/Resolved]
  - Dyspnoea [Recovered/Resolved]
